FAERS Safety Report 9712082 (Version 3)
Quarter: 2014Q1

REPORT INFORMATION
  Report Type: Report from Study
  Country: DE (occurrence: DE)
  Receive Date: 20131126
  Receipt Date: 20140131
  Transmission Date: 20141002
  Serious: Yes (Other)
  Sender: FDA-Public Use
  Company Number: DE-009507513-1311DEU009324

PATIENT
  Age: 69 Year
  Sex: Female
  Weight: 62 kg

DRUGS (6)
  1. BOCEPREVIR [Suspect]
     Indication: HEPATITIS C VIRUS TEST POSITIVE
     Dosage: 2400 MG, TOTAL DAILY DOSAGE
     Route: 048
     Dates: start: 20131105, end: 20131120
  2. PEGASYS [Concomitant]
     Indication: HEPATITIS C
     Dosage: 180 MICROGRAM, QW
     Dates: start: 20130926, end: 20131120
  3. COPEGUS [Concomitant]
     Indication: HEPATITIS C
     Dosage: 2 DF, BID
     Dates: start: 20130926, end: 20131120
  4. ENALAPRIL MALEATE [Concomitant]
     Indication: HEPATITIS C
     Dosage: 5 MG, QD
     Dates: start: 20131105
  5. LANSOPRAZOLE [Concomitant]
     Dosage: 30 MG, QD
     Dates: start: 20130910
  6. TAVOR (LORAZEPAM) [Concomitant]
     Indication: MENTAL DISORDER
     Dosage: 1.5 MG, PRN, HALF A TABLET AS NEEDED
     Route: 048
     Dates: start: 2013

REACTIONS (1)
  - Anxiety disorder [Not Recovered/Not Resolved]
